FAERS Safety Report 7765996-9 (Version None)
Quarter: 2011Q3

REPORT INFORMATION
  Report Type: 
  Country: None (occurrence: None)
  Receive Date: 20110921
  Receipt Date: 20110913
  Transmission Date: 20111222
  Serious: Yes (Other)
  Sender: FDA-Public Use
  Company Number: US-US-EMD SERONO, INC.-7083017

PATIENT
  Sex: Female

DRUGS (2)
  1. REBIF [Suspect]
     Dates: start: 20110901
  2. REBIF [Suspect]
     Indication: MULTIPLE SCLEROSIS
     Dates: start: 20051219, end: 20070801

REACTIONS (3)
  - GESTATIONAL DIABETES [None]
  - MATERNAL EXPOSURE DURING PREGNANCY [None]
  - NORMAL NEWBORN [None]
